FAERS Safety Report 8927367 (Version 2)
Quarter: 2013Q1

REPORT INFORMATION
  Report Type: Report from Study
  Country: FR (occurrence: FR)
  Receive Date: 20121127
  Receipt Date: 20130205
  Transmission Date: 20140127
  Serious: Yes (Death)
  Sender: FDA-Public Use
  Company Number: FR-BRISTOL-MYERS SQUIBB COMPANY-17134818

PATIENT
  Age: 65 Year
  Sex: Female

DRUGS (8)
  1. YERVOY [Suspect]
     Indication: MALIGNANT MELANOMA
     Route: 042
     Dates: start: 20101028, end: 20101231
  2. FOTEMUSTINE [Suspect]
     Dosage: MAINTENANCE TREATMENT FROM 08-JUL-2011 TO 21-JUN-2012.
     Dates: start: 20110524
  3. DACARBAZINE [Concomitant]
     Indication: MALIGNANT MELANOMA
     Route: 042
     Dates: start: 20091203, end: 20100401
  4. GABAPENTINE [Concomitant]
     Indication: EPILEPSY
     Route: 048
  5. KARDEGIC [Concomitant]
     Indication: ISCHAEMIC HEART DISEASE PROPHYLAXIS
     Route: 048
     Dates: start: 200805
  6. TAHOR [Concomitant]
     Indication: ISCHAEMIC HEART DISEASE PROPHYLAXIS
     Route: 048
     Dates: start: 200805
  7. BISOPROLOL [Concomitant]
     Route: 048
     Dates: start: 200805
  8. TRINIPATCH [Concomitant]
     Indication: CARDIOVASCULAR EVENT PROPHYLAXIS
     Route: 062
     Dates: start: 200805

REACTIONS (1)
  - Leukoencephalopathy [Fatal]
